FAERS Safety Report 9937286 (Version 4)
Quarter: 2014Q2

REPORT INFORMATION
  Report Type: Report from Study
  Country: CA (occurrence: CA)
  Receive Date: 20140302
  Receipt Date: 20140504
  Transmission Date: 20141212
  Serious: Yes (Other)
  Sender: FDA-Public Use
  Company Number: CA-US-EMD SERONO, INC.-7264645

PATIENT
  Age: 20 Year
  Sex: Male
  Weight: 71 kg

DRUGS (4)
  1. REBIF [Suspect]
     Indication: RELAPSING-REMITTING MULTIPLE SCLEROSIS
     Route: 058
     Dates: start: 20140117
  2. REBIF [Suspect]
     Route: 058
  3. REBIF [Suspect]
     Route: 058
  4. PREDNISONE [Suspect]
     Indication: PRODUCT USED FOR UNKNOWN INDICATION

REACTIONS (21)
  - Ophthalmoplegia [Not Recovered/Not Resolved]
  - Neutropenia [Unknown]
  - Dizziness [Recovered/Resolved]
  - Nausea [Recovered/Resolved]
  - Sleep disorder [Recovered/Resolved]
  - Multiple sclerosis relapse [Unknown]
  - Viral infection [Unknown]
  - Rhinorrhoea [Recovering/Resolving]
  - Cough [Recovering/Resolving]
  - Muscle twitching [Recovered/Resolved]
  - Thermohypoaesthesia [Unknown]
  - Muscular weakness [Unknown]
  - Sinus congestion [Unknown]
  - Hyperreflexia [Unknown]
  - Ataxia [Unknown]
  - Central nervous system lesion [Unknown]
  - Alanine aminotransferase increased [Unknown]
  - Leukopenia [Unknown]
  - Headache [Unknown]
  - Fatigue [Unknown]
  - Myalgia [Unknown]
